FAERS Safety Report 6030417-3 (Version None)
Quarter: 2009Q1

REPORT INFORMATION
  Report Type: 
  Country: None (occurrence: None)
  Receive Date: 20090106
  Receipt Date: 20090106
  Transmission Date: 20090719
  Serious: Yes (Hospitalization)
  Sender: FDA-Public Use
  Company Number: None

PATIENT
  Age: 73 Year
  Sex: Male

DRUGS (1)
  1. MORPHINE [Suspect]
     Indication: BACK PAIN
     Dosage: 15-30 MG BID PO
     Route: 048
     Dates: start: 20010216, end: 20080419

REACTIONS (1)
  - CONSTIPATION [None]
